FAERS Safety Report 5866597-X (Version None)
Quarter: 2008Q3

REPORT INFORMATION
  Report Type: 
  Country: None (occurrence: None)
  Receive Date: 20080827
  Receipt Date: 20080811
  Transmission Date: 20090109
  Serious: Yes (Hospitalization)
  Sender: FDA-Public Use
  Company Number: 001#1#2008-00469

PATIENT
  Age: 68 Year
  Sex: Male

DRUGS (2)
  1. NEUPRO [Suspect]
     Dosage: SEE IMAGE
     Route: 062
     Dates: start: 20080601
  2. NEUPRO [Suspect]
     Dosage: SEE IMAGE
     Route: 062
     Dates: start: 20080701

REACTIONS (3)
  - CIRCULATORY COLLAPSE [None]
  - DIARRHOEA [None]
  - GASTROINTESTINAL PAIN [None]
